FAERS Safety Report 23994969 (Version 1)
Quarter: 2024Q2

REPORT INFORMATION
  Report Type: Spontaneous
  Country: US (occurrence: None)
  Receive Date: 20240619
  Receipt Date: 20240619
  Transmission Date: 20240716
  Serious: Yes (Hospitalization)
  Sender: FDA-Public Use
  Company Number: None

PATIENT
  Age: 62 Year
  Sex: Male
  Weight: 65.25 kg

DRUGS (2)
  1. MOXIFLOXACIN [Suspect]
     Active Substance: MOXIFLOXACIN
     Indication: Conjunctivitis
     Dates: start: 20231112, end: 20231114
  2. VITAMINS [Concomitant]
     Active Substance: VITAMINS

REACTIONS (4)
  - Nerve injury [None]
  - Heart rate irregular [None]
  - Carditis [None]
  - Toxicity to various agents [None]

NARRATIVE: CASE EVENT DATE: 20231114
